FAERS Safety Report 9226633 (Version 1)
Quarter: 2013Q2

REPORT INFORMATION
  Report Type: Spontaneous
  Country: JP (occurrence: JP)
  Receive Date: 20130412
  Receipt Date: 20130412
  Transmission Date: 20140414
  Serious: Yes (Other)
  Sender: FDA-Public Use
  Company Number: JP-PFIZER INC-2013114414

PATIENT
  Age: 9 Decade
  Sex: Female

DRUGS (1)
  1. CELECOX [Suspect]
     Dosage: 200 MG, DAILY
     Route: 048

REACTIONS (2)
  - Ear discomfort [Unknown]
  - Meniere^s disease [Unknown]
